FAERS Safety Report 9449388 (Version 1)
Quarter: 2013Q3

REPORT INFORMATION
  Report Type: Report from Study
  Country: CN (occurrence: CN)
  Receive Date: 20130809
  Receipt Date: 20130809
  Transmission Date: 20140515
  Serious: Yes (Hospitalization)
  Sender: FDA-Public Use
  Company Number: CN-US-EMD SERONO, INC.-7227077

PATIENT
  Sex: Female
  Weight: 30 kg

DRUGS (1)
  1. SAIZEN [Suspect]
     Indication: GROWTH HORMONE DEFICIENCY
     Dosage: 3.3 INJECTION VOLUME

REACTIONS (5)
  - Gastric ulcer [Unknown]
  - Decreased appetite [Not Recovered/Not Resolved]
  - Rash generalised [Recovered/Resolved]
  - Atrophy [Unknown]
  - Syncope [Unknown]
